FAERS Safety Report 19108395 (Version 1)
Quarter: 2021Q2

REPORT INFORMATION
  Report Type: Spontaneous
  Country: US (occurrence: US)
  Receive Date: 20210408
  Receipt Date: 20210408
  Transmission Date: 20210717
  Serious: Yes (Hospitalization, Other)
  Sender: FDA-Public Use
  Company Number: None

PATIENT
  Age: 48 Year
  Sex: Female

DRUGS (4)
  1. VENTOLIN; VITS B,C,D,E; WELLBUTRIN; ZYRTEC [Concomitant]
  2. AZATHIOPRINE. [Suspect]
     Active Substance: AZATHIOPRINE
     Indication: OSTEOPOROSIS
     Route: 048
     Dates: start: 20170802
  3. ALLEGRA?D; ATENOLOL; B12; BUMEX; ELIQUIS; HYDROXYZ; IMURAN; LEVOTHYROX [Concomitant]
  4. LIOTHYRONINE; LYRICA; MAGNESIUM; POTASS; SEROQUEL; SINGULAIR; TRAZOD; [Concomitant]

REACTIONS (3)
  - Therapy interrupted [None]
  - Migraine [None]
  - Concussion [None]

NARRATIVE: CASE EVENT DATE: 20210317
